FAERS Safety Report 9878025 (Version 2)
Quarter: 2014Q1

REPORT INFORMATION
  Report Type: Spontaneous
  Country: JP (occurrence: JP)
  Receive Date: 20140206
  Receipt Date: 20140206
  Transmission Date: 20141002
  Serious: Yes (Death, Hospitalization)
  Sender: FDA-Public Use
  Company Number: JP-PFIZER INC-2013374064

PATIENT
  Age: 76 Year
  Sex: Male

DRUGS (3)
  1. ANCARON [Suspect]
     Indication: ATRIAL FIBRILLATION
     Dosage: 100 MG, 2X/DAY
     Route: 048
     Dates: start: 20131217, end: 20131219
  2. ANCARON [Suspect]
     Dosage: 100 MG, DAILY
     Route: 048
     Dates: start: 20131220, end: 20131221
  3. WARFARIN [Concomitant]
     Dosage: UNK
     Dates: start: 20131210, end: 20140102

REACTIONS (2)
  - Ventricular fibrillation [Fatal]
  - Electrocardiogram QT prolonged [Fatal]
